FAERS Safety Report 4855350-1 (Version None)
Quarter: 2005Q4

REPORT INFORMATION
  Report Type: 
  Country: None (occurrence: None)
  Receive Date: 20051215
  Receipt Date: 20051206
  Transmission Date: 20060501
  Serious: Yes (Hospitalization)
  Sender: FDA-Public Use
  Company Number: NO-MERCK-0512NOR00009

PATIENT
  Age: 65 Year
  Sex: Female

DRUGS (11)
  1. VIOXX [Suspect]
     Indication: OSTEOARTHRITIS
     Route: 048
     Dates: start: 20010301, end: 20020815
  2. VIOXX [Suspect]
     Route: 048
     Dates: start: 20020816, end: 20020909
  3. VIOXX [Suspect]
     Route: 048
     Dates: start: 20020909, end: 20030714
  4. VIOXX [Suspect]
     Route: 048
     Dates: start: 20030714, end: 20050601
  5. VIOXX [Suspect]
     Indication: FIBROMYALGIA
     Route: 048
     Dates: start: 20010301, end: 20020815
  6. VIOXX [Suspect]
     Route: 048
     Dates: start: 20020816, end: 20020909
  7. VIOXX [Suspect]
     Route: 048
     Dates: start: 20020909, end: 20030714
  8. VIOXX [Suspect]
     Route: 048
     Dates: start: 20030714, end: 20050601
  9. METOPROLOL TARTRATE [Concomitant]
     Indication: HYPERTENSION
     Route: 048
     Dates: start: 20020424
  10. HYDROCHLOROTHIAZIDE AND LOSARTAN POTASSIUM [Concomitant]
     Indication: HYPERTENSION
     Route: 048
     Dates: start: 20020321
  11. AMLODIPINE BESYLATE [Concomitant]
     Indication: HYPERTENSION
     Route: 048
     Dates: start: 20020909

REACTIONS (3)
  - ATRIAL FIBRILLATION [None]
  - ESSENTIAL HYPERTENSION [None]
  - MYOCARDIAL INFARCTION [None]
